FAERS Safety Report 8798231 (Version 3)
Quarter: 2012Q4

REPORT INFORMATION
  Report Type: 
  Country: CO (occurrence: CO)
  Receive Date: 20120920
  Receipt Date: 20121029
  Transmission Date: 20130627
  Serious: Yes (Death)
  Sender: FDA-Public Use
  Company Number: CO-PFIZER INC-2012230998

PATIENT
  Age: 43 Year
  Sex: Female

DRUGS (1)
  1. SUTENT [Suspect]
     Dosage: 1x/day
     Dates: start: 20090623

REACTIONS (3)
  - Death [Fatal]
  - Pain [Unknown]
  - Dizziness [Unknown]
